FAERS Safety Report 7361109-6 (Version None)
Quarter: 2011Q1

REPORT INFORMATION
  Report Type: 
  Country: None (occurrence: None)
  Receive Date: 20110315
  Receipt Date: 20110315
  Transmission Date: 20110831
  Serious: Yes (Other)
  Sender: FDA-Public Use
  Company Number: None

PATIENT
  Sex: Male
  Weight: 86.1834 kg

DRUGS (1)
  1. TYZANIDINE MUSCLE RELAXANT [Suspect]
     Dosage: 4 MG TOOK ONLY 1 PILL PRESCRIBED 3 PER DAY

REACTIONS (3)
  - SYNCOPE [None]
  - TRANSIENT ISCHAEMIC ATTACK [None]
  - BLOOD PRESSURE DECREASED [None]
